FAERS Safety Report 9213534 (Version 1)
Quarter: 2013Q1

REPORT INFORMATION
  Report Type: Spontaneous
  Country: US (occurrence: None)
  Receive Date: 20120827
  Receipt Date: 20120827
  Transmission Date: 20140127
  Serious: No
  Sender: FDA-Public Use
  Company Number: 352903

PATIENT
  Age: 68 Year
  Sex: Female

DRUGS (3)
  1. VICTOZA ( LIRAGLUTIDE) SOLUTION FOR INJECTION, 6MG/ML [Suspect]
     Indication: TYPE 2 DIABETES MELLITUS
     Route: 058
  2. NOVOTWIST ( NOVOTWIST) [Concomitant]
  3. METFORMIN ( METFORMIN) [Concomitant]

REACTIONS (2)
  - Drug ineffective [None]
  - Blood glucose increased [None]
